FAERS Safety Report 7579040-X (Version None)
Quarter: 2011Q2

REPORT INFORMATION
  Report Type: 
  Country: None (occurrence: None)
  Receive Date: 20110628
  Receipt Date: 20110620
  Transmission Date: 20111010
  Serious: Yes (Other)
  Sender: FDA-Public Use
  Company Number: PHHY2011GB53953

PATIENT
  Age: 59 Year
  Sex: Male

DRUGS (6)
  1. OMEPRAZOLE [Concomitant]
     Dosage: 20 MG, UNK
     Dates: start: 20100607
  2. CHLORPROMAZINE [Concomitant]
     Dosage: 50 MG, TID
     Dates: start: 20100616
  3. NIFEDIPINE [Concomitant]
     Indication: RAYNAUD'S PHENOMENON
     Dosage: 5 MG/DAY
     Dates: start: 20070101
  4. RISPERIDONE [Suspect]
     Indication: PSYCHOTIC DISORDER
     Dosage: 4 MG, UNK
     Route: 048
     Dates: start: 20101001, end: 20110101
  5. DICLOFENAC SODIUM [Concomitant]
     Indication: ARTHRALGIA
     Dosage: 50 MG, TID
     Dates: start: 20100101
  6. OLANZAPINE [Suspect]
     Indication: PSYCHOTIC DISORDER
     Dosage: 5 MG, UNK
     Dates: start: 20110301, end: 20110301

REACTIONS (2)
  - PANIC ATTACK [None]
  - DIPLOPIA [None]
